FAERS Safety Report 15621520 (Version 2)
Quarter: 2019Q1

REPORT INFORMATION
  Report Type: Spontaneous
  Country: BR (occurrence: BR)
  Receive Date: 20181115
  Receipt Date: 20190115
  Transmission Date: 20190417
  Serious: Yes (Other)
  Sender: FDA-Public Use
  Company Number: BR-PFIZER INC-2018466934

PATIENT
  Sex: Male

DRUGS (1)
  1. LORAX//LORAZEPAM [Suspect]
     Active Substance: LORAZEPAM
     Dosage: 180 MG, MONTHLY
     Dates: start: 1976

REACTIONS (5)
  - Drug dependence [Unknown]
  - Suicidal ideation [Unknown]
  - Decreased appetite [Unknown]
  - Loss of personal independence in daily activities [Unknown]
  - Insomnia [Unknown]

NARRATIVE: CASE EVENT DATE: 197703
